FAERS Safety Report 18654595 (Version 1)
Quarter: 2020Q4

REPORT INFORMATION
  Report Type: Report from Study
  Country: US (occurrence: US)
  Receive Date: 20201223
  Receipt Date: 20201223
  Transmission Date: 20210114
  Serious: Yes (Hospitalization, Other)
  Sender: FDA-Public Use
  Company Number: US-B.I. PHARMACEUTICALS,INC./RIDGEFIELD-2020-BI-055506

PATIENT
  Age: 81 Year
  Sex: Female

DRUGS (1)
  1. OFEV [Suspect]
     Active Substance: NINTEDANIB
     Indication: INTERSTITIAL LUNG DISEASE
     Dosage: 150MG PO BID
     Route: 048
     Dates: start: 20200731, end: 20200904

REACTIONS (12)
  - Nausea [Recovered/Resolved]
  - Paraesthesia [Unknown]
  - Liver function test increased [Recovered/Resolved]
  - Chest pain [Recovered/Resolved]
  - Vomiting [Recovered/Resolved]
  - Dehydration [Recovered/Resolved]
  - Cerebrovascular accident [Unknown]
  - Transient ischaemic attack [Recovered/Resolved]
  - Diarrhoea [Recovered/Resolved]
  - Malaise [Not Recovered/Not Resolved]
  - Transient ischaemic attack [Recovered/Resolved]
  - Renal impairment [Recovered/Resolved]

NARRATIVE: CASE EVENT DATE: 20200824
